FAERS Safety Report 9560390 (Version 2)
Quarter: 2013Q3

REPORT INFORMATION
  Report Type: Spontaneous
  Country: US (occurrence: None)
  Receive Date: 20130906
  Receipt Date: 20130906
  Transmission Date: 20140515
  Serious: Yes (Other)
  Sender: FDA-Public Use
  Company Number: 163-POMAL-13051326

PATIENT
  Age: 61 Year
  Sex: Male

DRUGS (2)
  1. POMALYST [Suspect]
     Indication: PLASMA CELL MYELOMA
     Dosage: 4 MG, CAPSULE, 21 IN 28 D, PO
     Route: 048
     Dates: start: 20130416, end: 20130508
  2. CYCLOPHOSPHAMIDE [Concomitant]

REACTIONS (1)
  - Full blood count decreased [None]
